FAERS Safety Report 5036455-1 (Version None)
Quarter: 2006Q2

REPORT INFORMATION
  Report Type: 
  Country: None (occurrence: None)
  Receive Date: 20060623
  Receipt Date: 20060619
  Transmission Date: 20061013
  Serious: Yes (Hospitalization, Other)
  Sender: FDA-Public Use
  Company Number: HQWYE269519JUN06

PATIENT
  Age: 60 Year
  Sex: Female

DRUGS (2)
  1. ADVIL [Suspect]
     Indication: FACE LIFT
     Dosage: 200 MG 1 X PER 1 DAY
     Route: 048
     Dates: start: 20060425, end: 20060426
  2. CLINDAMYCIN HYDROCHLORIDE [Suspect]
     Indication: FACE LIFT
     Dosage: 150 MG 2X PER 1 DAY
     Route: 048
     Dates: start: 20060425, end: 20060426

REACTIONS (3)
  - ANGIONEUROTIC OEDEMA [None]
  - ANXIETY [None]
  - SPEECH DISORDER [None]
